FAERS Safety Report 7632465-6 (Version None)
Quarter: 2011Q3

REPORT INFORMATION
  Report Type: 
  Country: None (occurrence: None)
  Receive Date: 20110725
  Receipt Date: 20100915
  Transmission Date: 20111222
  Serious: Yes (Other)
  Sender: FDA-Public Use
  Company Number: US-BRISTOL-MYERS SQUIBB COMPANY-15287139

PATIENT
  Age: 91 Year
  Sex: Male

DRUGS (3)
  1. FUROSEMIDE [Concomitant]
  2. ENALAPRIL MALEATE [Concomitant]
  3. COUMADIN [Suspect]
     Dosage: 1DF:ONE TABLET EACH OF 1 MG AND 6 MG TOTAL:6MG DURATION:2 YEARS

REACTIONS (2)
  - OEDEMA PERIPHERAL [None]
  - HAEMORRHAGE [None]
